FAERS Safety Report 15563446 (Version 5)
Quarter: 2019Q3

REPORT INFORMATION
  Report Type: Spontaneous
  Country: US (occurrence: US)
  Receive Date: 20181029
  Receipt Date: 20190816
  Transmission Date: 20191004
  Serious: No
  Sender: FDA-Public Use
  Company Number: US-ACTELION-A-US2018-180599

PATIENT
  Age: 43 Year
  Sex: Female
  Weight: 60.32 kg

DRUGS (4)
  1. UPTRAVI [Suspect]
     Active Substance: SELEXIPAG
     Indication: PULMONARY ARTERIAL HYPERTENSION
     Dosage: 400 UNK
     Route: 048
     Dates: start: 201505, end: 201507
  2. ADEMPAS [Concomitant]
     Active Substance: RIOCIGUAT
  3. WARFARIN [Concomitant]
     Active Substance: WARFARIN
  4. TRACLEER [Suspect]
     Active Substance: BOSENTAN
     Indication: PULMONARY ARTERIAL HYPERTENSION
     Dosage: 125 MG, BID
     Route: 048

REACTIONS (6)
  - Nausea [Recovered/Resolved]
  - Diarrhoea [Recovered/Resolved]
  - Chest discomfort [Unknown]
  - Headache [Recovered/Resolved]
  - Pain [Unknown]
  - Nasal congestion [Unknown]

NARRATIVE: CASE EVENT DATE: 201505
